FAERS Safety Report 14147610 (Version 1)
Quarter: 2017Q4

REPORT INFORMATION
  Report Type: Spontaneous
  Country: US (occurrence: US)
  Receive Date: 20171031
  Receipt Date: 20171031
  Transmission Date: 20180321
  Serious: No
  Sender: FDA-Public Use
  Company Number: US-ROMARKLABS-2016-US-000105

PATIENT
  Age: 17 Year
  Sex: Female
  Weight: 56.7 kg

DRUGS (3)
  1. ALINIA [Suspect]
     Active Substance: NITAZOXANIDE
     Indication: ABNORMAL BEHAVIOUR
     Dosage: 1 TABLET TWICE PER DAY
     Dates: start: 201605, end: 201605
  2. ALINIA [Suspect]
     Active Substance: NITAZOXANIDE
     Indication: INFECTION PARASITIC
     Dosage: 1 TABLET TWICE PER DAY
     Route: 048
     Dates: start: 201603, end: 201603
  3. AMITRIPTYLINE [Concomitant]
     Active Substance: AMITRIPTYLINE
     Indication: HEADACHE
     Dosage: LOW DOSE AT NIGHT
     Route: 048
     Dates: start: 201510

REACTIONS (3)
  - Abdominal pain upper [Recovered/Resolved]
  - Mood altered [Recovered/Resolved]
  - Therapeutic response unexpected [Recovered/Resolved]

NARRATIVE: CASE EVENT DATE: 201603
